FAERS Safety Report 17532847 (Version 2)
Quarter: 2020Q2

REPORT INFORMATION
  Report Type: Spontaneous
  Country: US (occurrence: US)
  Receive Date: 20200312
  Receipt Date: 20200529
  Transmission Date: 20200713
  Serious: No
  Sender: FDA-Public Use
  Company Number: US-PFIZER INC-2020106599

PATIENT
  Age: 56 Year
  Sex: Female
  Weight: 75.28 kg

DRUGS (2)
  1. XELJANZ XR [Suspect]
     Active Substance: TOFACITINIB CITRATE
     Indication: RHEUMATOID ARTHRITIS
     Dosage: 11 MG,
     Dates: start: 20191005
  2. RAYOS [Concomitant]
     Active Substance: PREDNISONE
     Dosage: 10 MG, 1X/DAY (2 TABLETS BEVERY NIGHT)
     Route: 048
     Dates: start: 20191005

REACTIONS (1)
  - No adverse event [Unknown]

NARRATIVE: CASE EVENT DATE: 20191005
